FAERS Safety Report 9428283 (Version 1)
Quarter: 2013Q3

REPORT INFORMATION
  Report Type: Spontaneous
  Country: US (occurrence: US)
  Receive Date: 20130730
  Receipt Date: 20130730
  Transmission Date: 20140515
  Serious: No
  Sender: FDA-Public Use
  Company Number: US-ABBOTT-12P-163-0963773-00

PATIENT
  Age: 81 Year
  Sex: Female
  Weight: 56.75 kg

DRUGS (3)
  1. NIASPAN (COATED) 1000MG [Suspect]
     Indication: BLOOD TRIGLYCERIDES INCREASED
  2. VICODIN [Concomitant]
     Indication: PRODUCT USED FOR UNKNOWN INDICATION
  3. MULTI-VITAMINS [Concomitant]
     Indication: PRODUCT USED FOR UNKNOWN INDICATION

REACTIONS (8)
  - Skin exfoliation [Not Recovered/Not Resolved]
  - Flushing [Recovered/Resolved]
  - Pruritus generalised [Not Recovered/Not Resolved]
  - Dyspepsia [Not Recovered/Not Resolved]
  - Abdominal pain [Not Recovered/Not Resolved]
  - Hepatic enzyme increased [Not Recovered/Not Resolved]
  - Blood urine present [Not Recovered/Not Resolved]
  - Abdominal discomfort [Not Recovered/Not Resolved]
